FAERS Safety Report 15007035 (Version 1)
Quarter: 2018Q2

REPORT INFORMATION
  Report Type: Spontaneous
  Country: US (occurrence: US)
  Receive Date: 20180526
  Receipt Date: 20180526
  Transmission Date: 20180711
  Serious: Yes (Other)
  Sender: FDA-Public Use
  Company Number: None

PATIENT
  Age: 75 Year
  Sex: Male
  Weight: 99 kg

DRUGS (8)
  1. MULTI VITAMINS [Concomitant]
     Active Substance: VITAMINS
  2. VITAMIN D [Concomitant]
     Active Substance: CHOLECALCIFEROL
  3. AREDS2 [Concomitant]
  4. REPATHA [Suspect]
     Active Substance: EVOLOCUMAB
     Indication: LOW DENSITY LIPOPROTEIN INCREASED
     Dosage: ?          QUANTITY:1 DF DOSAGE FORM;?
     Route: 030
     Dates: start: 20180425, end: 20180523
  5. DIABETES MEDS [Concomitant]
  6. ANGINA MEDS [Concomitant]
  7. CQ10 [Concomitant]
     Active Substance: UBIDECARENONE
  8. BLOOD PRESSURE MEDS [Concomitant]

REACTIONS (2)
  - Flatulence [None]
  - Blood glucose increased [None]

NARRATIVE: CASE EVENT DATE: 20180523
